FAERS Safety Report 11444415 (Version 3)
Quarter: 2015Q4

REPORT INFORMATION
  Report Type: Spontaneous
  Country: AR (occurrence: AR)
  Receive Date: 20150902
  Receipt Date: 20151202
  Transmission Date: 20160304
  Serious: No
  Sender: FDA-Public Use
  Company Number: AR-PFIZER INC-2015278617

PATIENT
  Age: 57 Year
  Sex: Male

DRUGS (7)
  1. METFORMIN [Concomitant]
     Active Substance: METFORMIN HYDROCHLORIDE
  2. ROSUVASTATINA /01588601/ [Concomitant]
     Active Substance: ROSUVASTATIN
  3. AMARYL [Concomitant]
     Active Substance: GLIMEPIRIDE
     Dosage: UNK
  4. SUTENT [Suspect]
     Active Substance: SUNITINIB MALATE
     Indication: METASTATIC RENAL CELL CARCINOMA
     Dosage: 50 MG, CYCLIC (4/2 SCHEME)
     Dates: start: 20150411, end: 20150726
  5. AMLODIPINA /00972402/ [Concomitant]
  6. SUTENT [Suspect]
     Active Substance: SUNITINIB MALATE
     Dosage: 7 DAYS ON , 7 DAYS OFF
     Dates: start: 20150807
  7. UROKIT [Concomitant]

REACTIONS (9)
  - Pain in extremity [Recovered/Resolved]
  - Limb discomfort [Recovered/Resolved]
  - Disease progression [Unknown]
  - Yellow skin [Recovered/Resolved]
  - Blister [Recovered/Resolved]
  - Paraesthesia [Recovered/Resolved]
  - Myalgia [Recovered/Resolved]
  - Hyperkeratosis [Recovered/Resolved]
  - Metastatic renal cell carcinoma [Unknown]

NARRATIVE: CASE EVENT DATE: 201507
